FAERS Safety Report 6576521-2 (Version None)
Quarter: 2010Q1

REPORT INFORMATION
  Report Type: 
  Country: None (occurrence: None)
  Receive Date: 20100210
  Receipt Date: 20100208
  Transmission Date: 20100710
  Serious: Yes (Hospitalization, Other)
  Sender: FDA-Public Use
  Company Number: IR-ROXANE LABORATORIES, INC.-2010-RO-00138RO

PATIENT
  Age: 49 Year
  Sex: Male

DRUGS (12)
  1. MYCOPHENOLATE MOFETIL [Suspect]
     Indication: IMMUNOSUPPRESSION
     Dosage: 2 G
  2. PREDNISOLONE [Suspect]
     Indication: IMMUNOSUPPRESSION
     Dosage: 30 MG
  3. PREDNISOLONE [Suspect]
     Dosage: 10 MG
  4. PREDNISOLONE [Suspect]
     Dosage: 5 MG
  5. CYCLOSPORINE [Suspect]
     Indication: IMMUNOSUPPRESSION
     Dosage: 300 MG
  6. CYCLOSPORINE [Suspect]
     Dosage: 250 MG
  7. ACYCLOVIR [Suspect]
     Indication: HERPES ZOSTER
     Route: 042
  8. GANCICLOVIR [Suspect]
     Indication: CYTOMEGALOVIRUS INFECTION
     Route: 042
  9. PODOPHYLLIN [Suspect]
     Indication: ANOGENITAL WARTS
  10. BENZOIN [Suspect]
     Indication: ANOGENITAL WARTS
  11. METHYLPREDNISOLONE [Suspect]
     Indication: TRANSPLANT REJECTION
     Route: 042
  12. ANALGESICS [Concomitant]
     Indication: PAIN IN EXTREMITY

REACTIONS (6)
  - ANOGENITAL WARTS [None]
  - BLOOD CREATININE INCREASED [None]
  - CYTOMEGALOVIRUS INFECTION [None]
  - HERPES ZOSTER [None]
  - OSTEOMA [None]
  - TRANSPLANT REJECTION [None]
